FAERS Safety Report 12799175 (Version 2)
Quarter: 2016Q4

REPORT INFORMATION
  Report Type: Spontaneous
  Country: US (occurrence: US)
  Receive Date: 20160930
  Receipt Date: 20161109
  Transmission Date: 20170207
  Serious: Yes (Other)
  Sender: FDA-Public Use
  Company Number: US-SA-2016SA175243

PATIENT
  Sex: Female

DRUGS (1)
  1. CAPZASIN HP ARTHRITIS PAIN RELIEF [Suspect]
     Active Substance: CAPSAICIN
     Route: 065
     Dates: start: 20160919, end: 20160919

REACTIONS (3)
  - Thermal burn [Unknown]
  - Scar [Unknown]
  - Burning sensation [Unknown]

NARRATIVE: CASE EVENT DATE: 20160919
